FAERS Safety Report 14348640 (Version 1)
Quarter: 2018Q1

REPORT INFORMATION
  Report Type: Spontaneous
  Country: US (occurrence: US)
  Receive Date: 20180103
  Receipt Date: 20180103
  Transmission Date: 20180509
  Serious: No
  Sender: FDA-Public Use
  Company Number: US-ELI_LILLY_AND_COMPANY-US201712007040

PATIENT
  Age: 35 Year
  Sex: Female

DRUGS (4)
  1. HUMALOG [Suspect]
     Active Substance: INSULIN LISPRO
     Indication: TYPE 2 DIABETES MELLITUS
     Dosage: 12 U, EACH MORNING
     Route: 058
     Dates: start: 20171214
  2. HUMALOG [Suspect]
     Active Substance: INSULIN LISPRO
     Dosage: 10 U, EACH EVENING
     Route: 058
     Dates: start: 20171214
  3. HUMULIN N [Suspect]
     Active Substance: INSULIN HUMAN
     Dosage: 10 U, EACH EVENING
     Route: 058
     Dates: start: 20171214
  4. HUMULIN N [Suspect]
     Active Substance: INSULIN HUMAN
     Indication: TYPE 2 DIABETES MELLITUS
     Dosage: 24 U, EACH MORNING
     Route: 058
     Dates: start: 20171214

REACTIONS (1)
  - Maternal exposure during pregnancy [Not Recovered/Not Resolved]

NARRATIVE: CASE EVENT DATE: 20171214
